FAERS Safety Report 9077854 (Version 1)
Quarter: 2013Q1

REPORT INFORMATION
  Report Type: Spontaneous
  Country: GB (occurrence: GB)
  Receive Date: 20130130
  Receipt Date: 20130130
  Transmission Date: 20140127
  Serious: Yes (Hospitalization)
  Sender: FDA-Public Use
  Company Number: GB-TEVA-382387ISR

PATIENT
  Age: 58 Year
  Sex: Male

DRUGS (4)
  1. BISOPROLOL [Suspect]
     Route: 048
  2. LOSARTAN [Suspect]
     Route: 048
  3. BENDROFLUMETHIAZIDE [Concomitant]
  4. ASPIRIN [Concomitant]

REACTIONS (4)
  - Dyspnoea [Unknown]
  - Atrioventricular block [Unknown]
  - Quality of life decreased [Unknown]
  - Abdominal distension [Unknown]
